FAERS Safety Report 23335444 (Version 1)
Quarter: 2023Q4

REPORT INFORMATION
  Report Type: Report from Study
  Country: US (occurrence: US)
  Receive Date: 20231225
  Receipt Date: 20231225
  Transmission Date: 20240110
  Serious: Yes (Other)
  Sender: FDA-Public Use
  Company Number: US-ASTELLAS-2023EU005480

PATIENT
  Age: 64 Year
  Sex: Male

DRUGS (4)
  1. ENZALUTAMIDE [Suspect]
     Active Substance: ENZALUTAMIDE
     Indication: Prostate cancer
     Route: 048
     Dates: start: 202310
  2. TIVICAY [Concomitant]
     Active Substance: DOLUTEGRAVIR SODIUM
     Indication: Product used for unknown indication
     Dosage: UNK UNK, UNKNOWN FREQ.
     Route: 065
  3. DESCOVY [Concomitant]
     Active Substance: EMTRICITABINE\TENOFOVIR ALAFENAMIDE FUMARATE
     Indication: Product used for unknown indication
     Dosage: UNK UNK, UNKNOWN FREQ.
     Route: 065
  4. ERLEADA [Concomitant]
     Active Substance: APALUTAMIDE
     Indication: Product used for unknown indication
     Dosage: UNK UNK, UNKNOWN FREQ.
     Route: 065

REACTIONS (2)
  - Neuropathy peripheral [Unknown]
  - Oedema [Unknown]

NARRATIVE: CASE EVENT DATE: 20231201
